FAERS Safety Report 9456590 (Version 1)
Quarter: 2013Q3

REPORT INFORMATION
  Report Type: Spontaneous
  Country: JP (occurrence: None)
  Receive Date: 20130809
  Receipt Date: 20130809
  Transmission Date: 20140515
  Serious: Yes (Hospitalization)
  Sender: FDA-Public Use
  Company Number: SYM-2013-08262

PATIENT
  Age: 56 Year
  Sex: Female
  Weight: 44 kg

DRUGS (5)
  1. FLUOROURACIL [Suspect]
     Indication: COLON CANCER
     Route: 040
     Dates: start: 20110318, end: 20110318
  2. ELPLAT [Suspect]
     Indication: COLON CANCER
     Route: 041
     Dates: start: 20110318, end: 20110318
  3. CALCIUM LEVOFOLINATE (CALCIUM LEVOFOLINATE) (CALCIUM LEVOFOLINATE) [Concomitant]
  4. GRANISETRON HYDROCHLORIDE (GRANISETRON HYDROCHLORIDE) (GRANISETRON HYDROCHLORIDE) [Concomitant]
  5. DEXAMETHASONE SODIUM PHOSPHATE (DEXAMETHASONE SODIUM PHOSPHATE0 (DEXAMETHASONE SODIUM PHOSPHATE) [Concomitant]

REACTIONS (4)
  - Neuropathy peripheral [None]
  - White blood cell count decreased [None]
  - Neutrophil count decreased [None]
  - Varices oesophageal [None]
